FAERS Safety Report 18578489 (Version 1)
Quarter: 2020Q4

REPORT INFORMATION
  Report Type: Spontaneous
  Country: US (occurrence: US)
  Receive Date: 20201204
  Receipt Date: 20201204
  Transmission Date: 20210114
  Serious: Yes (Hospitalization, Other)
  Sender: FDA-Public Use
  Company Number: US-AUROBINDO-AUR-APL-2020-058833

PATIENT
  Age: 48 Year
  Sex: Male

DRUGS (2)
  1. CLOMIPHENE CITRATE. [Concomitant]
     Active Substance: CLOMIPHENE CITRATE
     Indication: BLOOD TESTOSTERONE DECREASED
     Dosage: 100 MILLIGRAM, ONCE A DAY
     Route: 048
  2. AMOXICILLIN+CLAVULANIC ACID 875/125MG [Suspect]
     Active Substance: AMOXICILLIN\CLAVULANIC ACID
     Indication: ABSCESS NECK
     Dosage: 1 DOSAGE FORM, TWO TIMES A DAY
     Route: 048

REACTIONS (2)
  - Mania [Recovered/Resolved]
  - Bipolar I disorder [Recovered/Resolved]
